FAERS Safety Report 9747578 (Version 1)
Quarter: 2013Q4

REPORT INFORMATION
  Report Type: Spontaneous
  Country: US (occurrence: None)
  Receive Date: 20131206
  Receipt Date: 20131206
  Transmission Date: 20140711
  Serious: Yes (Life-Threatening, Hospitalization)
  Sender: FDA-Public Use
  Company Number: DAV-AE-DIL-13-02

PATIENT
  Age: 58 Year
  Sex: Female

DRUGS (1)
  1. DILTIAZEM [Suspect]
     Dosage: 30-40 PILLS

REACTIONS (6)
  - Poisoning [None]
  - Fluid overload [None]
  - Generalised oedema [None]
  - Pulmonary oedema [None]
  - Respiratory failure [None]
  - Atrioventricular block first degree [None]
